FAERS Safety Report 6275486-0 (Version None)
Quarter: 2009Q3

REPORT INFORMATION
  Report Type: 
  Country: None (occurrence: None)
  Receive Date: 20090721
  Receipt Date: 20090710
  Transmission Date: 20100115
  Serious: Yes (Other)
  Sender: FDA-Public Use
  Company Number: US-JNJFOC-20090703051

PATIENT
  Sex: Female
  Weight: 90.72 kg

DRUGS (5)
  1. ULTRAM [Suspect]
     Indication: BACK PAIN
     Dosage: STOP DATE: 2009
     Route: 048
  2. TOPROL-XL [Concomitant]
     Indication: CARDIAC DISORDER
     Route: 048
  3. COZAAR [Concomitant]
     Indication: CARDIAC DISORDER
     Route: 048
  4. LIPITOR [Concomitant]
     Indication: BLOOD CHOLESTEROL INCREASED
  5. NAPROXEN [Concomitant]
     Indication: BLOOD CHOLESTEROL INCREASED
     Route: 048

REACTIONS (3)
  - CHEST DISCOMFORT [None]
  - DYSPHAGIA [None]
  - DYSPNOEA [None]
